FAERS Safety Report 20619910 (Version 1)
Quarter: 2022Q1

REPORT INFORMATION
  Report Type: Spontaneous
  Country: US (occurrence: None)
  Receive Date: 20220321
  Receipt Date: 20220321
  Transmission Date: 20220423
  Serious: Yes (Hospitalization)
  Sender: FDA-Public Use
  Company Number: None

PATIENT
  Sex: Female

DRUGS (4)
  1. HUMIRA [Suspect]
     Active Substance: ADALIMUMAB
     Indication: Crohn^s disease
     Dosage: OTHER QUANTITY : 40MG/0.4ML;?FREQUENCY : WEEKLY;?
     Route: 058
     Dates: start: 20200618
  2. HUMIRA [Concomitant]
     Active Substance: ADALIMUMAB
  3. PENTASA CAP 250MG CR [Concomitant]
  4. SERTRALINE CON 20MG/ML [Concomitant]

REACTIONS (1)
  - Crohn^s disease [None]
